FAERS Safety Report 6264241-3 (Version None)
Quarter: 2009Q3

REPORT INFORMATION
  Report Type: 
  Country: None (occurrence: None)
  Receive Date: 20090706
  Receipt Date: 20080915
  Transmission Date: 20100115
  Serious: Yes (Other)
  Sender: FDA-Public Use
  Company Number: 587527

PATIENT
  Age: 9 Year
  Sex: Male

DRUGS (6)
  1. MYCOPHENOLATE MOFETIL [Suspect]
     Indication: JUVENILE ARTHRITIS
  2. METHOTREXATE [Suspect]
     Indication: JUVENILE ARTHRITIS
  3. STEROID NOS (STEROID NOS) [Suspect]
     Indication: JUVENILE ARTHRITIS
     Dosage: TOPICAL
     Route: 061
  4. CYCLOSPORINE [Suspect]
     Indication: JUVENILE ARTHRITIS
  5. ETANERCEPT (ETANERCEPT) [Suspect]
     Indication: JUVENILE ARTHRITIS
  6. INFLIXIMAB (INFLIXIMAB) [Suspect]
     Indication: JUVENILE ARTHRITIS
     Dosage: 5 MG/KG

REACTIONS (2)
  - HODGKIN'S DISEASE [None]
  - UVEITIS [None]
